FAERS Safety Report 9867340 (Version 3)
Quarter: 2014Q1

REPORT INFORMATION
  Report Type: Spontaneous
  Country: JP (occurrence: JP)
  Receive Date: 20140204
  Receipt Date: 20140221
  Transmission Date: 20141002
  Serious: Yes (Hospitalization)
  Sender: FDA-Public Use
  Company Number: JP-B.I. PHARMACEUTICALS,INC./RIDGEFIELD-2014-BI-03729NB

PATIENT
  Age: 84 Year
  Sex: Female
  Weight: 38 kg

DRUGS (3)
  1. TRAZENTA [Suspect]
     Indication: TYPE 2 DIABETES MELLITUS
     Dosage: 5 MG
     Route: 048
     Dates: start: 20130729, end: 20131207
  2. DEPAKENE / SODIUM VALPOATE [Concomitant]
     Indication: CONVULSION
     Dosage: 200 MG
     Route: 048
     Dates: start: 20091119, end: 20131209
  3. ADALAT -CR / NIFEDIPINE [Concomitant]
     Indication: HYPERTENSION
     Dosage: 40 MG
     Route: 048
     Dates: start: 20091119, end: 20131209

REACTIONS (3)
  - Platelet count decreased [Recovered/Resolved]
  - Fall [Recovered/Resolved]
  - Haemorrhage subcutaneous [Recovered/Resolved]
